FAERS Safety Report 8967681 (Version 1)
Quarter: 2012Q4

REPORT INFORMATION
  Report Type: Spontaneous
  Country: GB (occurrence: None)
  Receive Date: 20121210
  Receipt Date: 20121210
  Transmission Date: 20130627
  Serious: Yes (Other)
  Sender: FDA-Public Use
  Company Number: TPA2012A09673

PATIENT
  Age: 80 Year
  Sex: Female

DRUGS (8)
  1. ADENURIC [Suspect]
     Indication: GOUT
     Dosage: 80 mg (80 mg, 1 in 1 D) Oral
     Route: 048
     Dates: start: 20121101, end: 20121101
  2. ASPIRIN [Concomitant]
  3. BUMETANIDE [Concomitant]
  4. CARVEDILOL [Suspect]
  5. GLICLAZIDE [Concomitant]
  6. PARACETAMOL [Concomitant]
  7. SPIRONOLACTONE [Concomitant]
  8. VALSARTAN [Concomitant]

REACTIONS (2)
  - Hypersensitivity [None]
  - Rash maculo-papular [None]
